FAERS Safety Report 14070421 (Version 1)
Quarter: 2017Q4

REPORT INFORMATION
  Report Type: Spontaneous
  Country: BE (occurrence: BE)
  Receive Date: 20171010
  Receipt Date: 20171010
  Transmission Date: 20180321
  Serious: Yes (Disabling)
  Sender: FDA-Public Use
  Company Number: BE-B. BRAUN MEDICAL INC.-2029487

PATIENT
  Age: 71 Year
  Sex: Male
  Weight: 105 kg

DRUGS (8)
  1. HYASON (HYALURONIDASE) [Suspect]
     Active Substance: HYALURONIDASE
     Route: 031
     Dates: start: 20170824
  2. LIDOCAINE. [Suspect]
     Active Substance: LIDOCAINE
     Indication: VITRECTOMY
     Route: 031
     Dates: start: 20170824
  3. MAXITROL [Concomitant]
     Active Substance: DEXAMETHASONE\NEOMYCIN SULFATE\POLYMYXIN B SULFATE
  4. MARCAINE [Suspect]
     Active Substance: BUPIVACAINE HYDROCHLORIDE
     Route: 031
     Dates: start: 20170824
  5. ASAFLOW (ACETYLSALICYLIC ACID) [Concomitant]
  6. SOTALEX (SOTALOL) [Concomitant]
  7. PROGOR (DILTIAZEM) [Concomitant]
  8. COAPROVEL (IRBESARTAN, HYDROCHLOROTHIAZIDE) [Concomitant]

REACTIONS (4)
  - Blindness [Not Recovered/Not Resolved]
  - Product use issue [Not Recovered/Not Resolved]
  - Blindness unilateral [None]
  - Post procedural complication [None]

NARRATIVE: CASE EVENT DATE: 20170824
